FAERS Safety Report 4740801-3 (Version None)
Quarter: 2005Q3

REPORT INFORMATION
  Report Type: 
  Country: None (occurrence: None)
  Receive Date: 20050810
  Receipt Date: 20040621
  Transmission Date: 20060218
  Serious: No
  Sender: FDA-Public Use
  Company Number: US-GLAXOSMITHKLINE-A0515498A

PATIENT
  Age: 43 Year
  Sex: Male

DRUGS (1)
  1. TAGAMET HB 200 [Suspect]
     Dates: start: 20040613, end: 20040615

REACTIONS (1)
  - ABDOMINAL PAIN UPPER [None]
